FAERS Safety Report 5527273-6 (Version None)
Quarter: 2007Q4

REPORT INFORMATION
  Report Type: 
  Country: None (occurrence: None)
  Receive Date: 20071128
  Receipt Date: 20071119
  Transmission Date: 20080405
  Serious: Yes (Death)
  Sender: FDA-Public Use
  Company Number: CH-AVENTIS-200720507GDDC

PATIENT
  Age: 76 Year
  Sex: Male
  Weight: 87.3 kg

DRUGS (13)
  1. APIDRA [Suspect]
     Dosage: DOSE QUANTITY: 10
     Dates: start: 20060130
  2. APIDRA [Suspect]
     Dosage: DOSE QUANTITY: 30
     Dates: end: 20060404
  3. OPTIPEN (INSULIN PUMP) [Suspect]
  4. ARANESP [Suspect]
     Route: 058
     Dates: start: 20050830, end: 20060404
  5. ASPIRIN [Suspect]
     Route: 048
     Dates: start: 20040507, end: 20060404
  6. TOREM                              /01036501/ [Suspect]
     Route: 048
     Dates: start: 20050824, end: 20060404
  7. METFORMIN HCL [Concomitant]
     Dates: end: 20060404
  8. ORAL ANTIDIABETICS [Concomitant]
     Dates: end: 20060404
  9. LANTUS [Concomitant]
     Dosage: DOSE QUANTITY: 16
     Route: 058
     Dates: start: 20050616, end: 20060404
  10. MIXTARD                            /00634701/ [Concomitant]
     Dosage: DOSE QUANTITY: 22
     Route: 058
     Dates: start: 20000205, end: 20060404
  11. SIMCORA [Concomitant]
     Route: 048
     Dates: start: 20040809, end: 20060404
  12. REMERON [Concomitant]
     Route: 048
     Dates: start: 20040930, end: 20060404
  13. NEXIUM [Concomitant]
     Route: 048
     Dates: start: 20050216, end: 20060404

REACTIONS (1)
  - CARDIAC FAILURE [None]
